FAERS Safety Report 7915360-4 (Version None)
Quarter: 2011Q4

REPORT INFORMATION
  Report Type: 
  Country: None (occurrence: None)
  Receive Date: 20111115
  Receipt Date: 20111108
  Transmission Date: 20120403
  Serious: Yes (Other)
  Sender: FDA-Public Use
  Company Number: PHHY2011AR098601

PATIENT
  Age: 60 Year
  Sex: Female

DRUGS (1)
  1. ONBREZ [Suspect]
     Indication: ASTHMA
     Dosage: 1 DF, BID

REACTIONS (3)
  - PAIN [None]
  - FALL [None]
  - WRIST FRACTURE [None]
